FAERS Safety Report 19578720 (Version 1)
Quarter: 2021Q3

REPORT INFORMATION
  Report Type: Spontaneous
  Country: CA (occurrence: CA)
  Receive Date: 20210720
  Receipt Date: 20210720
  Transmission Date: 20211014
  Serious: Yes (Other)
  Sender: FDA-Public Use
  Company Number: CA-JNJFOC-20210734705

PATIENT
  Age: 26 Year
  Sex: Male
  Weight: 90 kg

DRUGS (1)
  1. INFLIXIMAB, RECOMBINANT [Suspect]
     Active Substance: INFLIXIMAB
     Indication: ANKYLOSING SPONDYLITIS
     Route: 042

REACTIONS (5)
  - Incorrect dose administered [Recovered/Resolved]
  - Off label use [Recovered/Resolved]
  - Somnolence [Recovered/Resolved]
  - Throat irritation [Recovered/Resolved]
  - Tooth infection [Recovered/Resolved]
